FAERS Safety Report 14579631 (Version 1)
Quarter: 2018Q1

REPORT INFORMATION
  Report Type: Spontaneous
  Country: US (occurrence: US)
  Receive Date: 20180227
  Receipt Date: 20180227
  Transmission Date: 20180509
  Serious: No
  Sender: FDA-Public Use
  Company Number: US-GILEAD-2018-0323292

PATIENT
  Sex: Male

DRUGS (1)
  1. RANEXA [Suspect]
     Active Substance: RANOLAZINE
     Indication: ANGINA PECTORIS
     Dosage: 500 UNK, UNK
     Route: 065
     Dates: start: 20180201, end: 20180215

REACTIONS (2)
  - Neck pain [Unknown]
  - Musculoskeletal stiffness [Unknown]
